FAERS Safety Report 7384106-3 (Version None)
Quarter: 2011Q1

REPORT INFORMATION
  Report Type: 
  Country: None (occurrence: None)
  Receive Date: 20110330
  Receipt Date: 20110323
  Transmission Date: 20110831
  Serious: Yes (Hospitalization)
  Sender: FDA-Public Use
  Company Number: A0899108A

PATIENT
  Age: 61 Year
  Sex: Male

DRUGS (1)
  1. AVANDIA [Suspect]
     Dosage: 8MG TWICE PER DAY
     Route: 048
     Dates: start: 20030601, end: 20080603

REACTIONS (6)
  - PALLOR [None]
  - MYOCARDIAL INFARCTION [None]
  - STENT PLACEMENT [None]
  - ARTERIAL DISORDER [None]
  - JOINT SWELLING [None]
  - CATHETER PLACEMENT [None]
